FAERS Safety Report 18619006 (Version 1)
Quarter: 2020Q4

REPORT INFORMATION
  Report Type: Spontaneous
  Country: US (occurrence: US)
  Receive Date: 20201215
  Receipt Date: 20201215
  Transmission Date: 20210114
  Serious: No
  Sender: FDA-Public Use
  Company Number: US-VERTEX PHARMACEUTICALS-2020-024298

PATIENT
  Sex: Female
  Weight: 65 kg

DRUGS (22)
  1. GRANIX [Concomitant]
     Active Substance: TBO-FILGRASTIM
  2. NOVOLOG [Concomitant]
     Active Substance: INSULIN ASPART
     Dosage: 100/ ML VIAL
  3. PROGRAF [Concomitant]
     Active Substance: TACROLIMUS
     Dosage: 0.5 MG CAPSULE
  4. CITALOPRAM HYDROBROMIDE. [Concomitant]
     Active Substance: CITALOPRAM HYDROBROMIDE
     Dosage: 20 MG TAB
  5. URSODIOL. [Concomitant]
     Active Substance: URSODIOL
     Dosage: 300 MG CAPSULE
  6. PRAVASTATIN SODIUM. [Concomitant]
     Active Substance: PRAVASTATIN SODIUM
     Dosage: 10 MG TAB
  7. TRIKAFTA [Suspect]
     Active Substance: ELEXACAFTOR\IVACAFTOR\TEZACAFTOR
     Indication: CYSTIC FIBROSIS
     Dosage: 2 TABS (AM) EVERY OTHER DAY ALTERNATING WITH 1 TAB (PM) EVERY OTHER DAY
     Route: 048
  8. FOSAMAX [Concomitant]
     Active Substance: ALENDRONATE SODIUM
     Dosage: 70 MG TAB
  9. VALACYCLOVIR HCL [Concomitant]
     Active Substance: VALACYCLOVIR HYDROCHLORIDE
     Dosage: 500 MG TAB
     Route: 048
  10. BACTRIM DS [Concomitant]
     Active Substance: SULFAMETHOXAZOLE\TRIMETHOPRIM
     Dosage: 800-1600 MG TAB
  11. VINATE AZ [Concomitant]
     Active Substance: .ALPHA.-TOCOPHEROL ACETATE\.ALPHA.-TOCOPHEROL ACETATE, DL-\.BETA.-CAROTENE\ASCORBIC ACID\BIOTIN\CALCIUM CARBONATE\CALCIUM PANTOTHENATE\CHOLECALCIFEROL\CUPRIC OXIDE\CYANOCOBALAMIN\FOLIC ACID\IRON\MAGNESIUM OXIDE\NIACINAMIDE\PYRIDOXINE HYDROCHLORIDE\RIBOFLAVIN\THIAMINE HYDROCHLORIDE\ZINC OXIDE
     Dosage: 27 MG-1MG TAB
  12. FERROUS SULFATE. [Concomitant]
     Active Substance: FERROUS SULFATE
     Dosage: 325 (65) MG TAB
  13. PREDNISONE. [Concomitant]
     Active Substance: PREDNISONE
     Dosage: 10 MG TAB
  14. ZARXIO [Concomitant]
     Active Substance: FILGRASTIM-SNDZ
  15. NEUPOGEN [Concomitant]
     Active Substance: FILGRASTIM
  16. MAGNESIUM OXIDE. [Concomitant]
     Active Substance: MAGNESIUM OXIDE
     Dosage: 400 MG TAB
  17. OMEPRAZOLE. [Concomitant]
     Active Substance: OMEPRAZOLE
     Dosage: 40 MG CAPSULE DR
  18. PRENATAL PLUS [Concomitant]
     Active Substance: .ALPHA.-TOCOPHEROL ACETATE, DL-\.BETA.-CAROTENE\ASCORBIC ACID\CALCIUM CARBONATE\CHOLECALCIFEROL\CUPRIC OXIDE\CYANOCOBALAMIN\FERROUS FUMARATE\FOLIC ACID\NIACINAMIDE\PYRIDOXINE HYDROCHLORIDE\RIBOFLAVIN\THIAMINE MONONITRATE\VITAMIN A ACETATE\ZINC OXIDE
     Dosage: 27 MG- 0.8 MG TABLET
  19. CRESEMBA [Concomitant]
     Active Substance: ISAVUCONAZONIUM SULFATE
     Dosage: 186 MG CAPSULE
  20. FAMOTIDINE. [Concomitant]
     Active Substance: FAMOTIDINE
     Dosage: 20 MG TAB
  21. ZENPEP [Concomitant]
     Active Substance: PANCRELIPASE AMYLASE\PANCRELIPASE LIPASE\PANCRELIPASE PROTEASE
     Dosage: 10-34-55K CAPSULE DR
  22. CALCIUM CITRATE + D [Concomitant]
     Active Substance: CALCIUM CITRATE\CHOLECALCIFEROL
     Dosage: 315 MG-250 TAB

REACTIONS (1)
  - Cellulitis [Unknown]

NARRATIVE: CASE EVENT DATE: 2020
